FAERS Safety Report 4919129-4 (Version None)
Quarter: 2006Q1

REPORT INFORMATION
  Report Type: 
  Country: None (occurrence: None)
  Receive Date: 20060222
  Receipt Date: 20060210
  Transmission Date: 20060701
  Serious: Yes (Hospitalization)
  Sender: FDA-Public Use
  Company Number: KR-SANOFI-SYNTHELABO-A01200601246

PATIENT
  Sex: Male

DRUGS (4)
  1. PLAVIX [Suspect]
     Indication: THROMBOSIS PROPHYLAXIS
     Route: 048
     Dates: start: 20050222
  2. ZOCOR [Concomitant]
     Indication: CARDIAC FAILURE
     Route: 048
  3. TRITACE [Concomitant]
     Indication: CARDIAC FAILURE
     Route: 048
  4. ASPIRIN [Concomitant]
     Indication: ANTICOAGULATION DRUG LEVEL
     Dosage: UNK
     Route: 048

REACTIONS (1)
  - SCRUB TYPHUS [None]
